FAERS Safety Report 14060558 (Version 2)
Quarter: 2017Q4

REPORT INFORMATION
  Report Type: Report from Study
  Country: None (occurrence: GB)
  Receive Date: 20171006
  Receipt Date: 20171113
  Transmission Date: 20180321
  Serious: Yes (Other)
  Sender: FDA-Public Use
  Company Number: GB-ABBVIE-17K-167-2020176-00

PATIENT
  Sex: Female

DRUGS (2)
  1. MADOPAR [Concomitant]
     Active Substance: BENSERAZIDE HYDROCHLORIDE\LEVODOPA
     Indication: PRODUCT USED FOR UNKNOWN INDICATION
  2. DUODOPA [Suspect]
     Active Substance: CARBIDOPA\LEVODOPA
     Indication: PARKINSON^S DISEASE
     Dosage: 100ML CASSETTE
     Route: 050

REACTIONS (10)
  - Eating disorder [Unknown]
  - Asthenia [Unknown]
  - Mobility decreased [Unknown]
  - Loss of personal independence in daily activities [Unknown]
  - Incorrect dose administered [Unknown]
  - Fall [Unknown]
  - General physical health deterioration [Unknown]
  - Drug effect incomplete [Unknown]
  - Device issue [Recovered/Resolved]
  - On and off phenomenon [Unknown]
